FAERS Safety Report 9638523 (Version 2)
Quarter: 2013Q4

REPORT INFORMATION
  Report Type: Spontaneous
  Country: US (occurrence: US)
  Receive Date: 20131022
  Receipt Date: 20131122
  Transmission Date: 20140711
  Serious: Yes (Life-Threatening, Hospitalization, Other)
  Sender: FDA-Public Use
  Company Number: CHPA2013US015776

PATIENT
  Age: 82 Year
  Sex: Female

DRUGS (6)
  1. 4 WAY FAST ACTING NASAL SPRAY [Suspect]
     Indication: NASAL CONGESTION
     Dosage: UNK, UNK
     Route: 045
  2. 4 WAY FAST ACTING NASAL SPRAY [Suspect]
     Indication: DYSPNOEA
  3. 4 WAY FAST ACTING NASAL SPRAY [Suspect]
     Indication: SEASONAL ALLERGY
  4. 4 WAY FAST ACTING NASAL SPRAY [Suspect]
     Indication: OFF LABEL USE
  5. 4 WAY FAST ACTING NASAL SPRAY [Suspect]
     Indication: THROAT IRRITATION
  6. TRIAMCINOLONE [Suspect]
     Indication: SWELLING
     Dosage: UNK, UNK

REACTIONS (12)
  - Feeling abnormal [Recovering/Resolving]
  - Thrombosis [Recovering/Resolving]
  - Loss of consciousness [Recovered/Resolved]
  - Cardiac disorder [Recovered/Resolved]
  - Concomitant disease aggravated [Recovered/Resolved]
  - Ventricular extrasystoles [Not Recovered/Not Resolved]
  - Swelling [Recovered/Resolved]
  - Arthropod sting [Recovered/Resolved]
  - Alopecia [Not Recovered/Not Resolved]
  - Seasonal allergy [Not Recovered/Not Resolved]
  - Disease recurrence [Not Recovered/Not Resolved]
  - Therapeutic response unexpected [Unknown]
